FAERS Safety Report 17147187 (Version 6)
Quarter: 2020Q4

REPORT INFORMATION
  Report Type: Spontaneous
  Country: JP (occurrence: JP)
  Receive Date: 20191212
  Receipt Date: 20201014
  Transmission Date: 20210113
  Serious: Yes (Hospitalization, Other)
  Sender: FDA-Public Use
  Company Number: JP-ALLERGAN-1950415US

PATIENT
  Sex: Female

DRUGS (1)
  1. BOTOX [Suspect]
     Active Substance: ONABOTULINUMTOXINA
     Indication: FACIAL SPASM
     Dosage: UNK
     Route: 031
     Dates: start: 20181206, end: 20181206

REACTIONS (13)
  - Cataract subcapsular [Recovering/Resolving]
  - Vision blurred [Recovered/Resolved]
  - Open globe injury [Recovered/Resolved]
  - Posterior capsule rupture [Recovering/Resolving]
  - Corneal perforation [Recovered/Resolved]
  - Vitreous opacities [Recovered/Resolved]
  - Cataract traumatic [Recovered/Resolved]
  - Anterior chamber inflammation [Recovered/Resolved]
  - Anterior capsular rupture [Recovering/Resolving]
  - Medication error [Unknown]
  - Visual acuity reduced [Recovered/Resolved]
  - Eye pain [Recovered/Resolved]
  - Corneal oedema [Recovered/Resolved]

NARRATIVE: CASE EVENT DATE: 20181206
